FAERS Safety Report 6468233-0 (Version None)
Quarter: 2009Q4

REPORT INFORMATION
  Report Type: 
  Country: None (occurrence: None)
  Receive Date: 20091124
  Receipt Date: 20091116
  Transmission Date: 20100525
  Serious: Yes (Death, Other)
  Sender: FDA-Public Use
  Company Number: MY-JNJFOC-20090904156

PATIENT
  Age: 56 Year
  Sex: Male

DRUGS (3)
  1. DACOGEN [Suspect]
     Indication: MYELODYSPLASTIC SYNDROME
     Dosage: 20 MG/M2, INTRAVENOUS; 20 MG/M2, INTRAVENOUS; 20 MG/M2, INTRAVENOUS
     Route: 042
     Dates: end: 20090801
  2. DACOGEN [Suspect]
     Indication: MYELODYSPLASTIC SYNDROME
     Dosage: 20 MG/M2, INTRAVENOUS; 20 MG/M2, INTRAVENOUS; 20 MG/M2, INTRAVENOUS
     Route: 042
     Dates: end: 20091001
  3. DACOGEN [Suspect]
     Indication: MYELODYSPLASTIC SYNDROME
     Dosage: 20 MG/M2, INTRAVENOUS; 20 MG/M2, INTRAVENOUS; 20 MG/M2, INTRAVENOUS
     Route: 042
     Dates: start: 20090701

REACTIONS (2)
  - LIVER ABSCESS [None]
  - PNEUMONIA [None]
